FAERS Safety Report 9704210 (Version 1)
Quarter: 2013Q4

REPORT INFORMATION
  Report Type: Spontaneous
  Country: US (occurrence: US)
  Receive Date: 20131122
  Receipt Date: 20131122
  Transmission Date: 20140711
  Serious: No
  Sender: FDA-Public Use
  Company Number: US-009507513-1310USA011101

PATIENT
  Sex: 0

DRUGS (2)
  1. AFLURIA [Suspect]
     Indication: PROPHYLAXIS
     Route: 030
  2. CELESTONE SOLUSPAN [Suspect]

REACTIONS (2)
  - Initial insomnia [Unknown]
  - Gout [Unknown]
